FAERS Safety Report 13797715 (Version 2)
Quarter: 2018Q1

REPORT INFORMATION
  Report Type: Report from Study
  Country: MX (occurrence: MX)
  Receive Date: 20170727
  Receipt Date: 20180327
  Transmission Date: 20180508
  Serious: Yes (Hospitalization, Other)
  Sender: FDA-Public Use
  Company Number: MX-ROCHE-1961050

PATIENT
  Age: 64 Year
  Sex: Female
  Weight: 106 kg

DRUGS (9)
  1. NEXIUM [Concomitant]
     Active Substance: ESOMEPRAZOLE MAGNESIUM
     Route: 048
     Dates: start: 2016
  2. CALCORT [Concomitant]
     Active Substance: DEFLAZACORT
     Indication: RHEUMATOID ARTHRITIS
     Route: 048
     Dates: start: 201708
  3. MABTHERA [Suspect]
     Active Substance: RITUXIMAB
     Indication: RHEUMATOID ARTHRITIS
     Dosage: FIRST DOSE OF 1000 MG FOLLOWED BY A BOOSTER DOSE OF 1000 MG 15 DAYS LATER.?LATEST CYCLE ADMINISTERED
     Route: 042
     Dates: start: 201612
  4. ENBREL [Concomitant]
     Active Substance: ETANERCEPT
  5. FOLIC ACID. [Concomitant]
     Active Substance: FOLIC ACID
  6. ARCOXIA [Concomitant]
     Active Substance: ETORICOXIB
     Indication: RHEUMATOID ARTHRITIS
     Route: 048
     Dates: start: 2016
  7. METHOTREXATE. [Concomitant]
     Active Substance: METHOTREXATE
  8. ARAVA [Concomitant]
     Active Substance: LEFLUNOMIDE
     Indication: RHEUMATOID ARTHRITIS
     Route: 048
     Dates: start: 2016
  9. XUZAL [Concomitant]
     Active Substance: LEVOCETIRIZINE
     Indication: HYPERSENSITIVITY
     Route: 048
     Dates: start: 201607

REACTIONS (8)
  - Somnolence [Not Recovered/Not Resolved]
  - Tooth infection [Recovered/Resolved]
  - Hypersensitivity [Recovered/Resolved]
  - Fatigue [Not Recovered/Not Resolved]
  - Alopecia [Not Recovered/Not Resolved]
  - Immunosuppression [Recovered/Resolved]
  - Vomiting [Recovered/Resolved]
  - Mouth ulceration [Recovered/Resolved]

NARRATIVE: CASE EVENT DATE: 2017
